FAERS Safety Report 13763799 (Version 2)
Quarter: 2017Q3

REPORT INFORMATION
  Report Type: Spontaneous
  Country: GB (occurrence: GB)
  Receive Date: 20170718
  Receipt Date: 20170816
  Transmission Date: 20171127
  Serious: Yes (Hospitalization)
  Sender: FDA-Public Use
  Company Number: GB-MYLANLABS-2017M1041365

PATIENT

DRUGS (1)
  1. CLOZARIL [Suspect]
     Active Substance: CLOZAPINE
     Indication: SCHIZOPHRENIA
     Dosage: UNK
     Route: 048
     Dates: start: 20040607

REACTIONS (5)
  - Therapy cessation [Unknown]
  - Differential white blood cell count abnormal [Unknown]
  - Lower respiratory tract infection [Unknown]
  - Treatment noncompliance [Unknown]
  - Leukocytosis [Unknown]

NARRATIVE: CASE EVENT DATE: 20170704
